FAERS Safety Report 22528980 (Version 1)
Quarter: 2023Q2

REPORT INFORMATION
  Report Type: Spontaneous
  Country: US (occurrence: US)
  Receive Date: 20230607
  Receipt Date: 20230607
  Transmission Date: 20230721
  Serious: No
  Sender: FDA-Public Use
  Company Number: US-STRIDES ARCOLAB LIMITED-2022SP016189

PATIENT
  Sex: Male

DRUGS (1)
  1. HYDROCORTISONE [Suspect]
     Active Substance: HYDROCORTISONE
     Indication: Product used for unknown indication
     Dosage: UNK (PACKED IN BOTTLE 50)
     Route: 065

REACTIONS (4)
  - Fatigue [Unknown]
  - Appetite disorder [Unknown]
  - Abdominal pain upper [Unknown]
  - Headache [Unknown]
